FAERS Safety Report 5201123-X (Version None)
Quarter: 2007Q1

REPORT INFORMATION
  Report Type: 
  Country: None (occurrence: None)
  Receive Date: 20070108
  Receipt Date: 20070108
  Transmission Date: 20070707
  Serious: Yes (Other)
  Sender: FDA-Public Use
  Company Number: GB-BRISTOL-MYERS SQUIBB COMPANY-13589841

PATIENT
  Age: 62 Year
  Sex: Male

DRUGS (6)
  1. PRINIVIL [Suspect]
     Route: 048
  2. WARFARIN SODIUM [Suspect]
  3. SOTALOL HCL [Suspect]
  4. AMLODIPINE BESYLATE [Suspect]
  5. ALLOPURINOL SODIUM [Suspect]
  6. SIMVASTATIN [Suspect]

REACTIONS (1)
  - THROMBOCYTOPENIA [None]
